FAERS Safety Report 17498929 (Version 2)
Quarter: 2020Q2

REPORT INFORMATION
  Report Type: Report from Study
  Country: BR (occurrence: BR)
  Receive Date: 20200304
  Receipt Date: 20200429
  Transmission Date: 20200713
  Serious: Yes (Other)
  Sender: FDA-Public Use
  Company Number: BR-JNJFOC-20200227210

PATIENT
  Age: 67 Year
  Sex: Female
  Weight: 80 kg

DRUGS (10)
  1. PREBICTAL [Concomitant]
     Active Substance: PREGABALIN
     Indication: ARTHRITIS
  2. ALENIA                             /01479302/ [Concomitant]
     Indication: CHRONIC OBSTRUCTIVE PULMONARY DISEASE
  3. RAMIPRIL. [Concomitant]
     Active Substance: RAMIPRIL
     Indication: HYPERTENSION
  4. GLYCOPYRRONIUM BROMIDE [Concomitant]
     Active Substance: GLYCOPYRRONIUM
     Indication: CHRONIC OBSTRUCTIVE PULMONARY DISEASE
  5. ASPRIN [Concomitant]
     Active Substance: ASPIRIN
     Indication: HYPERTENSION
  6. TRAMADOL. [Concomitant]
     Active Substance: TRAMADOL
     Indication: ARTHRITIS
  7. STELARA [Suspect]
     Active Substance: USTEKINUMAB
     Indication: PSORIASIS
     Route: 058
     Dates: start: 20191024
  8. STELARA [Suspect]
     Active Substance: USTEKINUMAB
     Route: 058
     Dates: start: 20191121
  9. CELEBRA [Concomitant]
     Active Substance: CELECOXIB
     Indication: ARTHRITIS
  10. GLYCOPYRRONIUM BROMIDE [Concomitant]
     Active Substance: GLYCOPYRRONIUM

REACTIONS (8)
  - Psoriatic arthropathy [Not Recovered/Not Resolved]
  - Abdominal distension [Unknown]
  - Weight decreased [Unknown]
  - Inappropriate schedule of product administration [Unknown]
  - Hyperhidrosis [Unknown]
  - Psoriasis [Not Recovered/Not Resolved]
  - Memory impairment [Unknown]
  - Gastric ulcer [Recovered/Resolved]

NARRATIVE: CASE EVENT DATE: 202001
